FAERS Safety Report 8208473-3 (Version None)
Quarter: 2012Q1

REPORT INFORMATION
  Report Type: 
  Country: None (occurrence: None)
  Receive Date: 20120314
  Receipt Date: 20120301
  Transmission Date: 20120608
  Serious: Yes (Other)
  Sender: FDA-Public Use
  Company Number: DE-AMGEN-DEUCT2012000990

PATIENT
  Age: 13 Year
  Sex: Female
  Weight: 42 kg

DRUGS (5)
  1. AMLODIPINE [Concomitant]
     Indication: RAYNAUD'S PHENOMENON
     Dosage: 5 MG, SINGLE
     Route: 048
  2. ENBREL [Suspect]
     Dosage: 30 MG, WEEKLY
     Route: 058
  3. ENBREL [Suspect]
     Indication: JUVENILE ARTHRITIS
     Dosage: 75 MG, QWK
     Route: 058
     Dates: start: 20090826
  4. METHOTREXATE SODIUM [Suspect]
     Indication: PSORIATIC ARTHROPATHY
     Dosage: 10 MG, WEEKLY
     Route: 048
     Dates: start: 20090301, end: 20110101
  5. FOLSAN [Concomitant]
     Dosage: UNK

REACTIONS (2)
  - PURPURA [None]
  - SKIN HAEMORRHAGE [None]
